FAERS Safety Report 6068226-1 (Version None)
Quarter: 2009Q1

REPORT INFORMATION
  Report Type: 
  Country: None (occurrence: None)
  Receive Date: 20090206
  Receipt Date: 20090202
  Transmission Date: 20090719
  Serious: Yes (Hospitalization, Other)
  Sender: FDA-Public Use
  Company Number: US-BAYER-US-2006-027833

PATIENT
  Age: 36 Year
  Sex: Male

DRUGS (19)
  1. CAMPATH [Suspect]
     Indication: MULTIPLE SCLEROSIS
     Dosage: UNIT DOSE: 24 MG
     Route: 042
     Dates: start: 20040602, end: 20040604
  2. CAMPATH [Suspect]
     Dosage: UNIT DOSE: 24 MG
     Route: 042
     Dates: start: 20050607, end: 20050609
  3. CAMPATH [Suspect]
     Route: 042
     Dates: start: 20030602, end: 20030605
  4. FIORICET [Concomitant]
     Dates: start: 20030724, end: 20030807
  5. FIORICET [Concomitant]
     Dates: start: 20030821
  6. ZOLOFT [Concomitant]
     Dates: start: 20040325
  7. PAMELOR [Concomitant]
     Dates: start: 20030808
  8. COUMADIN [Concomitant]
     Dates: start: 20040625, end: 20050611
  9. COUMADIN [Concomitant]
     Dates: start: 20050615
  10. BACLOFEN [Concomitant]
     Dates: start: 20050715
  11. TYLENOL [Concomitant]
     Dates: start: 20030602, end: 20030602
  12. VICODIN [Concomitant]
     Dates: start: 20050524, end: 20050601
  13. VICODIN [Concomitant]
     Dates: start: 20030101, end: 20030801
  14. PERCOCET [Concomitant]
     Dates: start: 20030807, end: 20030801
  15. ROCEPHIN [Concomitant]
     Dates: start: 20040102, end: 20040102
  16. AUGMENTIN XR [Concomitant]
     Dates: start: 20040101, end: 20040111
  17. BENADRYL [Concomitant]
     Dates: start: 20030801, end: 20030802
  18. BENADRYL [Concomitant]
     Dates: start: 20050607, end: 20050609
  19. EXCEDRINE MIGRAINE [Concomitant]
     Dates: start: 20030801, end: 20030802

REACTIONS (2)
  - HYPERTHYROIDISM [None]
  - HYPOTHYROIDISM [None]
